FAERS Safety Report 9511609 (Version 1)
Quarter: 2013Q3

REPORT INFORMATION
  Report Type: Report from Study
  Country: AR (occurrence: AR)
  Receive Date: 20130910
  Receipt Date: 20130910
  Transmission Date: 20140515
  Serious: Yes (Hospitalization)
  Sender: FDA-Public Use
  Company Number: PHHY2013AR098563

PATIENT
  Age: 70 Year
  Sex: Male

DRUGS (1)
  1. STALEVO [Suspect]
     Indication: PARKINSON^S DISEASE
     Dosage: 150 MG, UNK
     Route: 048
     Dates: start: 2010

REACTIONS (1)
  - Gun shot wound [Recovering/Resolving]
